FAERS Safety Report 10802473 (Version 2)
Quarter: 2015Q1

REPORT INFORMATION
  Report Type: Spontaneous
  Country: FR (occurrence: FR)
  Receive Date: 20150217
  Receipt Date: 20150224
  Transmission Date: 20150721
  Serious: Yes (Other)
  Sender: FDA-Public Use
  Company Number: FR-PFIZER INC-2015057602

PATIENT
  Age: 59 Year
  Sex: Male

DRUGS (5)
  1. BEVITINE [Suspect]
     Active Substance: THIAMINE
     Dosage: 5 DF (100MG/2ML), DAILY
     Route: 042
     Dates: start: 20141005, end: 20141010
  2. PHLOROGLUCINOL/TRIMETHYLPHLOROGLUCINOL [Suspect]
     Active Substance: PHLOROGLUCINOL
     Dosage: 4 DF (40/0.04 MG/ML), 1X/DAY
     Route: 042
     Dates: start: 20141004, end: 20141007
  3. PYRIDOXINE CHLORHYDRATE [Suspect]
     Active Substance: PYRIDOXINE HYDROCHLORIDE
     Dosage: 1 DF (50MG/ML), DAILY
     Route: 042
     Dates: start: 20141005, end: 20141010
  4. CEFTRIAXONE PANPHARMA [Suspect]
     Active Substance: CEFTRIAXONE
     Dosage: 1 G, 1X/DAY
     Route: 042
     Dates: start: 20141005, end: 20141012
  5. EUPANTOL [Suspect]
     Active Substance: PANTOPRAZOLE SODIUM
     Dosage: 40 MG, 1X/DAY
     Route: 042
     Dates: start: 20141004, end: 20141007

REACTIONS (1)
  - Venous thrombosis limb [Recovered/Resolved]

NARRATIVE: CASE EVENT DATE: 20141010
